FAERS Safety Report 20110902 (Version 1)
Quarter: 2021Q4

REPORT INFORMATION
  Report Type: Report from Study
  Country: US (occurrence: US)
  Receive Date: 20211124
  Receipt Date: 20211124
  Transmission Date: 20220303
  Serious: Yes (Other)
  Sender: FDA-Public Use
  Company Number: US-SA-2019SA290395

PATIENT
  Age: 68 Year
  Sex: Male

DRUGS (6)
  1. DUPILUMAB [Suspect]
     Active Substance: DUPILUMAB
     Indication: Dermatitis atopic
     Dosage: 600 MG, 1X
     Route: 058
     Dates: start: 20191002, end: 20191002
  2. DUPILUMAB [Suspect]
     Active Substance: DUPILUMAB
     Dosage: 300 MG, QOW
     Route: 058
     Dates: start: 2019, end: 2019
  3. DUPILUMAB [Suspect]
     Active Substance: DUPILUMAB
     Dosage: 300 MG, QOW
     Route: 058
     Dates: start: 20191106, end: 20191210
  4. PREDNISONE [Concomitant]
     Active Substance: PREDNISONE
     Dosage: 25 MG
  5. PREDNISONE [Concomitant]
     Active Substance: PREDNISONE
     Dosage: 5 MG
     Dates: end: 20191017
  6. MYCOPHENOLIC ACID [Concomitant]
     Active Substance: MYCOPHENOLIC ACID
     Dosage: UNK

REACTIONS (10)
  - Neoplasm malignant [Unknown]
  - Cataract [Unknown]
  - Fatigue [Unknown]
  - Blood glucose increased [Unknown]
  - Glycosylated haemoglobin increased [Unknown]
  - Dry skin [Unknown]
  - Product dose omission issue [Unknown]
  - Pruritus [Unknown]
  - COVID-19 [Unknown]
  - Drug effect less than expected [Unknown]

NARRATIVE: CASE EVENT DATE: 20191016
